FAERS Safety Report 20781875 (Version 3)
Quarter: 2022Q3

REPORT INFORMATION
  Report Type: Spontaneous
  Country: CZ (occurrence: CZ)
  Receive Date: 20220504
  Receipt Date: 20220926
  Transmission Date: 20221027
  Serious: Yes (Life-Threatening, Hospitalization, Other)
  Sender: FDA-Public Use
  Company Number: None

PATIENT
  Age: 64 Year
  Sex: Female

DRUGS (9)
  1. YERVOY [Suspect]
     Active Substance: IPILIMUMAB
     Indication: Renal neoplasm
     Dosage: ADMINISTERED 3 CYCLES OF IPI + NIVO AFTER 21 DAYS
     Route: 017
     Dates: start: 20220118, end: 20220302
  2. YERVOY [Suspect]
     Active Substance: IPILIMUMAB
  3. OPDIVO [Suspect]
     Active Substance: NIVOLUMAB
     Indication: Renal neoplasm
     Dosage: ONCE EVERY 21 DAYS, DEPENDING ON THE CONDITION, CONTINUED ONLY IN MONOTHERAPY, CONTROL ULTRASOUND PE
     Route: 042
     Dates: start: 20220118, end: 20220302
  4. CITALOPRAM [Concomitant]
     Active Substance: CITALOPRAM HYDROBROMIDE
     Indication: Product used for unknown indication
     Dosage: 1-0-0
     Route: 048
  5. CITALOPRAM [Concomitant]
     Active Substance: CITALOPRAM HYDROBROMIDE
  6. DIOSMIN\HESPERIDIN [Concomitant]
     Active Substance: DIOSMIN\HESPERIDIN
     Indication: Product used for unknown indication
     Dosage: 1-0-1
     Route: 065
  7. DIOSMIN\HESPERIDIN [Concomitant]
     Active Substance: DIOSMIN\HESPERIDIN
  8. Lozap [Concomitant]
     Indication: Product used for unknown indication
     Dosage: 1-0-0
     Route: 048
  9. Neurol [Concomitant]
     Indication: Anxiety
     Dosage: IN CASE OF ANXIETY, MAX 3 TIMES A DAY
     Route: 048

REACTIONS (2)
  - Autoimmune myocarditis [Recovering/Resolving]
  - Chest pain [Recovering/Resolving]

NARRATIVE: CASE EVENT DATE: 20220301
